FAERS Safety Report 6509790-5 (Version None)
Quarter: 2009Q4

REPORT INFORMATION
  Report Type: 
  Country: None (occurrence: None)
  Receive Date: 20091221
  Receipt Date: 20091221
  Transmission Date: 20100525
  Serious: No
  Sender: FDA-Public Use
  Company Number: None

PATIENT
  Sex: Male
  Weight: 29.0302 kg

DRUGS (1)
  1. SINGULAIR [Suspect]
     Indication: BRONCHIAL HYPERREACTIVITY
     Dosage: 5 MG 1 TIME DAILY PO, ON AND OFF FROM 2006-2009
     Route: 048

REACTIONS (6)
  - CRYING [None]
  - FEAR [None]
  - FEELING ABNORMAL [None]
  - NEGATIVE THOUGHTS [None]
  - NIGHTMARE [None]
  - SELF-INJURIOUS IDEATION [None]
